FAERS Safety Report 16547981 (Version 2)
Quarter: 2021Q3

REPORT INFORMATION
  Report Type: Spontaneous
  Country: US (occurrence: US)
  Receive Date: 20190709
  Receipt Date: 20210709
  Transmission Date: 20211014
  Serious: No
  Sender: FDA-Public Use
  Company Number: US-ASTELLAS-2019US015039

PATIENT
  Age: 73 Year
  Sex: Female

DRUGS (1)
  1. MYRBETRIQ [Suspect]
     Active Substance: MIRABEGRON
     Indication: HYPERTONIC BLADDER
     Route: 048
     Dates: start: 20190118, end: 20190215

REACTIONS (7)
  - Lip injury [Unknown]
  - Face injury [Unknown]
  - Lip swelling [Unknown]
  - Skin discolouration [Unknown]
  - Fall [Unknown]
  - Limb injury [Unknown]
  - Swelling face [Unknown]

NARRATIVE: CASE EVENT DATE: 20190326
